FAERS Safety Report 11568467 (Version 1)
Quarter: 2015Q3

REPORT INFORMATION
  Report Type: Spontaneous
  Country: US (occurrence: US)
  Receive Date: 20150916
  Receipt Date: 20150916
  Transmission Date: 20151125
  Serious: No
  Sender: FDA-Public Use
  Company Number: US-ELI_LILLY_AND_COMPANY-US200908003757

PATIENT
  Sex: Female

DRUGS (2)
  1. CALTRATE [Concomitant]
     Active Substance: CALCIUM CARBONATE
  2. FORTEO [Suspect]
     Active Substance: TERIPARATIDE
     Dates: start: 2009

REACTIONS (3)
  - Injection site haemorrhage [Unknown]
  - Dry mouth [Unknown]
  - Injection site bruising [Unknown]
